FAERS Safety Report 7549769-8 (Version None)
Quarter: 2011Q2

REPORT INFORMATION
  Report Type: 
  Country: None (occurrence: None)
  Receive Date: 20110615
  Receipt Date: 20051222
  Transmission Date: 20111010
  Serious: Yes (Hospitalization, Other)
  Sender: FDA-Public Use
  Company Number: PHFR2005GB03229

PATIENT
  Sex: Male

DRUGS (2)
  1. CLOZAPINE [Suspect]
     Indication: SCHIZOPHRENIA
     Dosage: 225 MG/DAY
     Route: 048
     Dates: start: 20050912, end: 20051001
  2. LITHIUM CARBONATE [Concomitant]
     Indication: MOOD ALTERED
     Dosage: 600 MG/NOCTE
     Route: 048

REACTIONS (13)
  - WHITE BLOOD CELL COUNT INCREASED [None]
  - BLOOD SODIUM DECREASED [None]
  - PLATELET COUNT DECREASED [None]
  - PLATELET AGGREGATION [None]
  - CARBON DIOXIDE ABNORMAL [None]
  - DIARRHOEA [None]
  - INFLUENZA LIKE ILLNESS [None]
  - GASTROENTERITIS VIRAL [None]
  - CONFUSIONAL STATE [None]
  - MALAISE [None]
  - BLOOD CREATININE INCREASED [None]
  - PYREXIA [None]
  - LYMPHOCYTE COUNT DECREASED [None]
